FAERS Safety Report 13731384 (Version 2)
Quarter: 2017Q3

REPORT INFORMATION
  Report Type: Spontaneous
  Country: US (occurrence: US)
  Receive Date: 20170707
  Receipt Date: 20170922
  Transmission Date: 20171127
  Serious: Yes (Death, Hospitalization)
  Sender: FDA-Public Use
  Company Number: US-JNJFOC-20170622661

PATIENT
  Age: 66 Year
  Sex: Male

DRUGS (1)
  1. XARELTO [Suspect]
     Active Substance: RIVAROXABAN
     Indication: DEEP VEIN THROMBOSIS
     Route: 048
     Dates: start: 20160208, end: 20160211

REACTIONS (4)
  - Shock haemorrhagic [Fatal]
  - Thrombocytopenia [Recovering/Resolving]
  - Haematuria [Recovering/Resolving]
  - Rectal haemorrhage [Fatal]

NARRATIVE: CASE EVENT DATE: 20160210
